FAERS Safety Report 15311228 (Version 1)
Quarter: 2018Q3

REPORT INFORMATION
  Report Type: Report from Study
  Country: US (occurrence: US)
  Receive Date: 20180823
  Receipt Date: 20180823
  Transmission Date: 20181010
  Serious: Yes (Hospitalization)
  Sender: FDA-Public Use
  Company Number: US-EISAI MEDICAL RESEARCH-EC-2018-044223

PATIENT
  Age: 70 Year
  Sex: Male

DRUGS (6)
  1. CETUXIMAB. [Suspect]
     Active Substance: CETUXIMAB
     Indication: SQUAMOUS CELL CARCINOMA OF HEAD AND NECK
     Route: 041
     Dates: start: 20180614, end: 20180614
  2. MIRTAZAPINE. [Concomitant]
     Active Substance: MIRTAZAPINE
  3. CETUXIMAB. [Suspect]
     Active Substance: CETUXIMAB
     Route: 041
     Dates: start: 20180621, end: 20180807
  4. OMEPRAZOLE. [Concomitant]
     Active Substance: OMEPRAZOLE
  5. LENVATINIB [Suspect]
     Active Substance: LENVATINIB
     Indication: SQUAMOUS CELL CARCINOMA OF HEAD AND NECK
     Route: 048
     Dates: start: 20180614, end: 20180807
  6. DEXAMETHASONE. [Concomitant]
     Active Substance: DEXAMETHASONE

REACTIONS (2)
  - Dysphagia [Unknown]
  - Dehydration [Unknown]

NARRATIVE: CASE EVENT DATE: 20180814
